FAERS Safety Report 21334095 (Version 5)
Quarter: 2022Q4

REPORT INFORMATION
  Report Type: Spontaneous
  Country: CA (occurrence: CA)
  Receive Date: 20220914
  Receipt Date: 20221114
  Transmission Date: 20230113
  Serious: Yes (Other)
  Sender: FDA-Public Use
  Company Number: CA-PFIZER INC-202201156872

PATIENT
  Age: 50 Year
  Sex: Male

DRUGS (1)
  1. ABRILADA [Suspect]
     Active Substance: ADALIMUMAB-AFZB
     Indication: Ankylosing spondylitis
     Dosage: 40 MG, EVERY 2 WEEKS
     Route: 058
     Dates: start: 20220531

REACTIONS (3)
  - Pain [Recovered/Resolved]
  - Gait disturbance [Recovered/Resolved]
  - Sacroiliitis [Recovered/Resolved]

NARRATIVE: CASE EVENT DATE: 20220101
